FAERS Safety Report 4777907-9 (Version None)
Quarter: 2005Q3

REPORT INFORMATION
  Report Type: 
  Country: None (occurrence: None)
  Receive Date: 20050921
  Receipt Date: 20050906
  Transmission Date: 20060218
  Serious: Yes (Other)
  Sender: FDA-Public Use
  Company Number: 12283

PATIENT
  Age: 65 Year
  Sex: Male

DRUGS (4)
  1. IRINOTECAN HCL [Suspect]
     Indication: RECTOSIGMOID CANCER
     Dosage: 180 MCG/M2 PER_CYCLE
  2. LEUCOVORIN [Suspect]
     Indication: RECTOSIGMOID CANCER
     Dosage: 200 MG/M2 OTH
  3. FLUOROURACIL [Suspect]
     Indication: RECTOSIGMOID CANCER
     Dosage: 400 MG/M2 OTH IV
     Route: 042
  4. FLUOROURACIL [Suspect]
     Indication: RECTOSIGMOID CANCER
     Dosage: 600 MG/M2 OTHER IV
     Route: 042

REACTIONS (1)
  - HEPATITIS B [None]
